FAERS Safety Report 9865155 (Version 1)
Quarter: 2014Q1

REPORT INFORMATION
  Report Type: Spontaneous
  Country: US (occurrence: US)
  Receive Date: 20140203
  Receipt Date: 20140203
  Transmission Date: 20141002
  Serious: Yes (Other)
  Sender: FDA-Public Use
  Company Number: CHPA2014US001936

PATIENT
  Age: 7 Year
  Sex: Female

DRUGS (2)
  1. TRIAMINIC DAY TIME COLD + COUGH [Suspect]
     Dosage: UNK, PRN
     Route: 048
     Dates: start: 2011
  2. TRIAMINIC DAY TIME COLD + COUGH [Suspect]
     Dosage: UNK, PRN
     Route: 048
     Dates: start: 2013

REACTIONS (2)
  - Asthma [Not Recovered/Not Resolved]
  - Coeliac disease [Not Recovered/Not Resolved]
